FAERS Safety Report 5626389-3 (Version None)
Quarter: 2008Q1

REPORT INFORMATION
  Report Type: 
  Country: None (occurrence: None)
  Receive Date: 20080214
  Receipt Date: 20080206
  Transmission Date: 20080703
  Serious: Yes (Death, Hospitalization, Disabling)
  Sender: FDA-Public Use
  Company Number: GB-ROCHE-545197

PATIENT
  Age: 77 Year
  Sex: Female
  Weight: 53 kg

DRUGS (10)
  1. BONIVA [Suspect]
     Indication: OSTEOPOROSIS
     Route: 040
     Dates: start: 20071106
  2. DILTIAZEM [Concomitant]
     Route: 048
  3. ASPIRIN [Concomitant]
     Route: 048
  4. CALCICHEW D3 FORTE [Concomitant]
     Route: 048
  5. GABAPENTIN [Concomitant]
     Route: 048
  6. OMEPRAZOLE [Concomitant]
     Route: 048
  7. PREDNISOLONE [Concomitant]
     Route: 048
  8. SIMVASTATIN [Concomitant]
     Route: 048
  9. MORPHINE SULFATE [Concomitant]
     Route: 048
  10. ORAMORPH SR [Concomitant]
     Route: 048

REACTIONS (3)
  - KYPHOSIS [None]
  - PNEUMONIA [None]
  - RESPIRATORY FAILURE [None]
